FAERS Safety Report 4783199-7 (Version None)
Quarter: 2005Q3

REPORT INFORMATION
  Report Type: 
  Country: None (occurrence: None)
  Receive Date: 20050929
  Receipt Date: 20050919
  Transmission Date: 20060218
  Serious: Yes (Other)
  Sender: FDA-Public Use
  Company Number: MU-GLAXOSMITHKLINE-B0394840A

PATIENT
  Sex: Female

DRUGS (1)
  1. ZYBAN [Suspect]
     Route: 048
     Dates: start: 20050601

REACTIONS (3)
  - ABNORMAL BEHAVIOUR [None]
  - HYPERSENSITIVITY [None]
  - MANIA [None]
